FAERS Safety Report 13823024 (Version 2)
Quarter: 2017Q3

REPORT INFORMATION
  Report Type: Spontaneous
  Country: FR (occurrence: FR)
  Receive Date: 20170801
  Receipt Date: 20170818
  Transmission Date: 20171127
  Serious: Yes (Other)
  Sender: FDA-Public Use
  Company Number: FR-BAYER-2017-144288

PATIENT
  Age: 36 Year
  Sex: Female

DRUGS (1)
  1. MIRENA [Suspect]
     Active Substance: LEVONORGESTREL
     Indication: CONTRACEPTION
     Dosage: 20 MCG/24HR, CONT
     Route: 015
     Dates: start: 20151107, end: 20170708

REACTIONS (10)
  - Diarrhoea [Not Recovered/Not Resolved]
  - Libido decreased [Not Recovered/Not Resolved]
  - Mood altered [Not Recovered/Not Resolved]
  - Vertigo [Not Recovered/Not Resolved]
  - Migraine [Not Recovered/Not Resolved]
  - Abdominal pain [Not Recovered/Not Resolved]
  - Back pain [Not Recovered/Not Resolved]
  - Vulvovaginal mycotic infection [Not Recovered/Not Resolved]
  - Depression [Not Recovered/Not Resolved]
  - Neck pain [Not Recovered/Not Resolved]
